FAERS Safety Report 5632564-4 (Version None)
Quarter: 2008Q1

REPORT INFORMATION
  Report Type: 
  Country: None (occurrence: None)
  Receive Date: 20080220
  Receipt Date: 20080208
  Transmission Date: 20080703
  Serious: Yes (Other)
  Sender: FDA-Public Use
  Company Number: US-PFIZER INC-2008012896

PATIENT
  Sex: Female
  Weight: 61.363 kg

DRUGS (2)
  1. LYRICA [Suspect]
     Indication: FIBROMYALGIA
  2. LORAZEPAM [Concomitant]

REACTIONS (7)
  - DISABILITY [None]
  - FATIGUE [None]
  - FEELING DRUNK [None]
  - MENTAL IMPAIRMENT [None]
  - MUSCLE DISORDER [None]
  - VISUAL DISTURBANCE [None]
  - VITAMIN D DECREASED [None]
